FAERS Safety Report 16468737 (Version 1)
Quarter: 2019Q2

REPORT INFORMATION
  Report Type: Spontaneous
  Country: MX (occurrence: MX)
  Receive Date: 20190624
  Receipt Date: 20190624
  Transmission Date: 20190711
  Serious: Yes (Hospitalization)
  Sender: FDA-Public Use
  Company Number: MX-PERRIGO-19US007294

PATIENT
  Age: 16 Year
  Sex: Female

DRUGS (2)
  1. DEXTROMETHORPHAN [Suspect]
     Active Substance: DEXTROMETHORPHAN
     Dosage: UNK, UNK
     Route: 048
  2. ALLERGY (DIPHENHYDRAMINE HYDROCHLORIDE) [Suspect]
     Active Substance: DIPHENHYDRAMINE HYDROCHLORIDE
     Indication: OVERDOSE
     Dosage: UNK, UNK
     Route: 048

REACTIONS (7)
  - Flushing [Recovered/Resolved]
  - Overdose [Recovered/Resolved]
  - Hyporeflexia [Recovered/Resolved]
  - Anxiety [Recovered/Resolved]
  - Urinary retention [Recovered/Resolved]
  - Mucosal dryness [Recovered/Resolved]
  - Gastrointestinal sounds abnormal [Recovered/Resolved]
